FAERS Safety Report 5257338-8 (Version None)
Quarter: 2007Q1

REPORT INFORMATION
  Report Type: 
  Country: None (occurrence: None)
  Receive Date: 20070307
  Receipt Date: 20070222
  Transmission Date: 20070707
  Serious: Yes (Hospitalization)
  Sender: FDA-Public Use
  Company Number: BE-NOVOPROD-260781

PATIENT
  Age: 75 Year
  Sex: Male

DRUGS (2)
  1. NOVONORM [Suspect]
     Indication: DIABETES MELLITUS NON-INSULIN-DEPENDENT
     Dosage: 3X1 MG, QD
     Dates: start: 20050901
  2. GLUCOPHAGE [Concomitant]
     Dosage: 500X2 MG, QD

REACTIONS (1)
  - HYPOGLYCAEMIC COMA [None]
